FAERS Safety Report 12187122 (Version 1)
Quarter: 2016Q1

REPORT INFORMATION
  Report Type: Spontaneous
  Country: TR (occurrence: TR)
  Receive Date: 20160317
  Receipt Date: 20160317
  Transmission Date: 20160526
  Serious: Yes (Other)
  Sender: FDA-Public Use
  Company Number: TR-MEDA-2016030019

PATIENT
  Age: 9 Year
  Sex: Female

DRUGS (1)
  1. OXYMETHOLONE [Suspect]
     Active Substance: OXYMETHOLONE
     Indication: CONGENITAL APLASTIC ANAEMIA

REACTIONS (1)
  - Superior sagittal sinus thrombosis [Recovered/Resolved]
